FAERS Safety Report 17016073 (Version 1)
Quarter: 2019Q4

REPORT INFORMATION
  Report Type: Spontaneous
  Country: CO (occurrence: CO)
  Receive Date: 20191111
  Receipt Date: 20191111
  Transmission Date: 20200122
  Serious: Yes (Hospitalization, Other)
  Sender: FDA-Public Use
  Company Number: CO-PFIZER INC-2019482119

PATIENT
  Sex: Female

DRUGS (1)
  1. REAMPLA [Suspect]
     Active Substance: PALBOCICLIB
     Dosage: 125 MG, CYCLIC (21 DAYS; BEFORE LUNCH)
     Route: 048

REACTIONS (5)
  - Malaise [Unknown]
  - Thrombosis [Unknown]
  - Disease recurrence [Unknown]
  - Aphonia [Recovering/Resolving]
  - Weight increased [Unknown]
